FAERS Safety Report 19246243 (Version 1)
Quarter: 2021Q2

REPORT INFORMATION
  Report Type: Spontaneous
  Country: JP (occurrence: JP)
  Receive Date: 20210512
  Receipt Date: 20210512
  Transmission Date: 20210717
  Serious: Yes (Other)
  Sender: FDA-Public Use
  Company Number: JP-BAYER-2021-110034

PATIENT
  Age: 90 Year
  Sex: Male

DRUGS (1)
  1. NUBEQA [Suspect]
     Active Substance: DAROLUTAMIDE
     Indication: PROSTATE CANCER
     Dosage: DAILY DOSE 1200 MG
     Dates: start: 20201006, end: 20201201

REACTIONS (2)
  - Prostatic specific antigen increased [None]
  - Prostate cancer [None]

NARRATIVE: CASE EVENT DATE: 20201201
